FAERS Safety Report 9933581 (Version 2)
Quarter: 2014Q1

REPORT INFORMATION
  Report Type: Report from Study
  Country: US (occurrence: US)
  Receive Date: 20140228
  Receipt Date: 20140228
  Transmission Date: 20141002
  Serious: No
  Sender: FDA-Public Use
  Company Number: US-ABBVIE-13P-163-1173371-00

PATIENT
  Sex: Male
  Weight: 68.1 kg

DRUGS (2)
  1. ANDROGEL [Suspect]
     Indication: KLINEFELTER^S SYNDROME
     Dosage: 5 PUMPS PER DAY
     Dates: start: 201104, end: 201308
  2. ADVAIR [Concomitant]
     Indication: ASTHMA

REACTIONS (4)
  - Bone pain [Not Recovered/Not Resolved]
  - Muscle atrophy [Not Recovered/Not Resolved]
  - Mood swings [Not Recovered/Not Resolved]
  - Personality disorder [Not Recovered/Not Resolved]
